FAERS Safety Report 24838062 (Version 1)
Quarter: 2025Q1

REPORT INFORMATION
  Report Type: Spontaneous
  Country: US (occurrence: US)
  Receive Date: 20250113
  Receipt Date: 20250113
  Transmission Date: 20250409
  Serious: Yes (Hospitalization, Other)
  Sender: PFIZER
  Company Number: US-PFIZER INC-202500005499

PATIENT
  Age: 77 Year
  Sex: Female

DRUGS (1)
  1. IBRANCE [Suspect]
     Active Substance: PALBOCICLIB
     Dates: start: 20241016, end: 20241024

REACTIONS (11)
  - Pneumonia [Unknown]
  - Illness [Recovered/Resolved]
  - Epistaxis [Unknown]
  - Eyelid function disorder [Unknown]
  - Constipation [Unknown]
  - Weight decreased [Unknown]
  - Ageusia [Unknown]
  - Asthenia [Unknown]
  - Mobility decreased [Unknown]
  - Thirst [Unknown]
  - Night sweats [Unknown]

NARRATIVE: CASE EVENT DATE: 20241016
